FAERS Safety Report 9579052 (Version 1)
Quarter: 2013Q4

REPORT INFORMATION
  Report Type: Spontaneous
  Country: US (occurrence: US)
  Receive Date: 20131001
  Receipt Date: 20131001
  Transmission Date: 20140711
  Serious: No
  Sender: FDA-Public Use
  Company Number: US-AMGEN-USASP2013016257

PATIENT
  Age: 49 Year
  Sex: Female
  Weight: 53.52 kg

DRUGS (4)
  1. ENBREL [Suspect]
     Indication: PRODUCT USED FOR UNKNOWN INDICATION
     Dosage: 50 MG, TWICE A WEEK FOR 3 MONTHS THEN 50 MG ONCE A WEEK THEREAFTER
     Route: 058
  2. CALCIUM [Concomitant]
     Dosage: 500 UNK, UNK
  3. B 12 [Concomitant]
     Dosage: 1000 MUG, UNK
  4. VITAMIN D3 [Concomitant]
     Dosage: 10000 UNIT, UNK

REACTIONS (1)
  - Hot flush [Unknown]
